FAERS Safety Report 5962511-7 (Version None)
Quarter: 2008Q4

REPORT INFORMATION
  Report Type: 
  Country: None (occurrence: None)
  Receive Date: 20081121
  Receipt Date: 20081111
  Transmission Date: 20090506
  Serious: Yes (Other)
  Sender: FDA-Public Use
  Company Number: IL-PFIZER INC-2008094853

PATIENT
  Age: 65 Year
  Sex: Female

DRUGS (1)
  1. TOLTERODINE TARTRATE [Suspect]

REACTIONS (2)
  - CONVULSION [None]
  - NIGHTMARE [None]
